FAERS Safety Report 11127320 (Version 1)
Quarter: 2015Q2

REPORT INFORMATION
  Report Type: Spontaneous
  Country: US (occurrence: US)
  Receive Date: 20150521
  Receipt Date: 20150521
  Transmission Date: 20150821
  Serious: No
  Sender: FDA-Public Use
  Company Number: US-BAYER-2015-251557

PATIENT
  Age: 77 Year
  Sex: Female
  Weight: 54.42 kg

DRUGS (1)
  1. AFRIN ORIGINAL [Suspect]
     Active Substance: OXYMETAZOLINE HYDROCHLORIDE
     Indication: NASAL CONGESTION
     Dosage: USED 1 TIME
     Dates: start: 201503, end: 201503

REACTIONS (3)
  - Nasal pruritus [Recovered/Resolved]
  - Nasal discomfort [Recovered/Resolved]
  - Expired product administered [None]

NARRATIVE: CASE EVENT DATE: 201503
